FAERS Safety Report 7049899-3 (Version None)
Quarter: 2010Q4

REPORT INFORMATION
  Report Type: 
  Country: None (occurrence: None)
  Receive Date: 20101018
  Receipt Date: 20101007
  Transmission Date: 20110411
  Serious: Yes (Hospitalization)
  Sender: FDA-Public Use
  Company Number: NO-BAYER-201041643GPV

PATIENT
  Sex: Female

DRUGS (1)
  1. MIRENA [Suspect]
     Indication: PRODUCT USED FOR UNKNOWN INDICATION
     Route: 015
     Dates: start: 20100831, end: 20100903

REACTIONS (6)
  - ABDOMINAL TENDERNESS [None]
  - GENITAL HAEMORRHAGE [None]
  - MALAISE [None]
  - PURULENT DISCHARGE [None]
  - PYREXIA [None]
  - SEPSIS [None]
